FAERS Safety Report 6142061-8 (Version None)
Quarter: 2009Q1

REPORT INFORMATION
  Report Type: 
  Country: None (occurrence: None)
  Receive Date: 20090331
  Receipt Date: 20090331
  Transmission Date: 20090719
  Serious: No
  Sender: FDA-Public Use
  Company Number: None

PATIENT
  Age: 70 Year
  Sex: Female
  Weight: 61.6892 kg

DRUGS (1)
  1. BONIVA [Suspect]
     Indication: OSTEOPOROSIS
     Dosage: 1 TABLET ONCE A DAY PO ONE TIME
     Route: 048
     Dates: start: 20090304, end: 20090304

REACTIONS (3)
  - DIARRHOEA [None]
  - HEADACHE [None]
  - MALAISE [None]
